FAERS Safety Report 6920810-6 (Version None)
Quarter: 2010Q3

REPORT INFORMATION
  Report Type: 
  Country: None (occurrence: None)
  Receive Date: 20100804
  Receipt Date: 20091113
  Transmission Date: 20110219
  Serious: No
  Sender: FDA-Public Use
  Company Number: 2009-4707

PATIENT
  Age: 51 Year
  Sex: Male
  Weight: 92.7 kg

DRUGS (4)
  1. SOMATULINE DEPOT [Suspect]
     Indication: PRODUCT USED FOR UNKNOWN INDICATION
     Dosage: (60 MG, NOT REPORTED), INTRAMUSCULAR
     Route: 030
     Dates: start: 20091111
  2. PREDNISONE [Concomitant]
  3. SYNTHROID [Concomitant]
  4. ANDROGEL [Concomitant]

REACTIONS (5)
  - CHILLS [None]
  - DIARRHOEA [None]
  - NAUSEA [None]
  - PYREXIA [None]
  - VOMITING [None]
